FAERS Safety Report 19939345 (Version 2)
Quarter: 2023Q1

REPORT INFORMATION
  Report Type: Report from Study
  Country: DE (occurrence: DE)
  Receive Date: 20211011
  Receipt Date: 20230209
  Transmission Date: 20230417
  Serious: Yes (Other)
  Sender: FDA-Public Use
  Company Number: DE-MYLANLABS-2021M1070619

PATIENT
  Age: 3 Decade
  Sex: Male

DRUGS (5)
  1. EVEROLIMUS [Suspect]
     Active Substance: EVEROLIMUS
     Indication: Hodgkin^s disease
     Dosage: 15 MILLIGRAM, QD, TO BE ADMINISTERED CONTINUOUSLY FROM DAY 1 OF EACH 28-DAY CYCLE
     Route: 048
  2. ETORICOXIB [Suspect]
     Active Substance: ETORICOXIB
     Indication: Hodgkin^s disease
     Dosage: 60 MILLIGRAM, QD, TO BE ADMINISTERED CONTINUOUSLY FROM DAY 1 OF EACH 28-DAY CYCLE
     Route: 048
  3. TREOSULFAN [Suspect]
     Active Substance: TREOSULFAN
     Indication: Hodgkin^s disease
     Dosage: 250 MILLIGRAM, QD, TO BE ADMINISTERED CONTINUOUSLY FROM DAY 1 OF EACH 28-DAY CYCLE
     Route: 048
  4. PIOGLITAZONE [Suspect]
     Active Substance: PIOGLITAZONE
     Indication: Hodgkin^s disease
     Dosage: 45 MILLIGRAM, QD, TO BE ADMINISTERED CONTINUOUSLY FROM DAY 1 OF EACH 28-DAY CYCLE
     Route: 048
  5. DEXAMETHASONE [Suspect]
     Active Substance: DEXAMETHASONE
     Indication: Hodgkin^s disease
     Dosage: 0.5 MILLIGRAM, QD, TO BE ADMINISTERED CONTINUOUSLY FROM DAY 1 OF EACH 28-DAY CYCLE
     Route: 048

REACTIONS (3)
  - Pneumonia bacterial [Unknown]
  - Sinusitis [Unknown]
  - Off label use [Unknown]
